FAERS Safety Report 20675504 (Version 2)
Quarter: 2022Q2

REPORT INFORMATION
  Report Type: Spontaneous
  Country: TH (occurrence: TH)
  Receive Date: 20220405
  Receipt Date: 20220427
  Transmission Date: 20220721
  Serious: Yes (Life-Threatening, Hospitalization)
  Sender: FDA-Public Use
  Company Number: TH-SCILEX PHARMACEUTICALS INC.-2022SCX00008

PATIENT
  Age: 32 Year
  Sex: Male
  Weight: 49 kg

DRUGS (4)
  1. LIDOCAINE [Suspect]
     Active Substance: LIDOCAINE
     Indication: Liposuction
     Dosage: 0.21% LIDOCAINE SOLUTION (1200 MG OF LIDOCAINE IN 560 ML FLUIDS)
     Route: 042
     Dates: start: 20210113, end: 20210113
  2. LIDOCAINE [Suspect]
     Active Substance: LIDOCAINE
     Dosage: 500 ML OF 0.21% LIDOCAINE UNK
     Route: 042
     Dates: start: 20210113, end: 20210113
  3. EPINEPHRINE [Concomitant]
     Active Substance: EPINEPHRINE
     Indication: Liposuction
     Dosage: 0.2 MG (IN 500 ML OF LACTATED RINGERS)
     Route: 058
  4. LACTATED RINGERS SOLUTION [Concomitant]
     Active Substance: CALCIUM CHLORIDE\POTASSIUM CHLORIDE\SODIUM CHLORIDE\SODIUM LACTATE
     Indication: Liposuction
     Dosage: 500 ML
     Route: 058

REACTIONS (9)
  - Overdose [Recovered/Resolved]
  - Local anaesthetic systemic toxicity [Recovered/Resolved]
  - Seizure [Recovered/Resolved]
  - Blood pressure decreased [Recovered/Resolved]
  - Bradycardia [Recovered/Resolved]
  - Cardiac arrest [Recovered/Resolved]
  - Metabolic acidosis [Recovered/Resolved]
  - Hypoxic-ischaemic encephalopathy [Recovered/Resolved with Sequelae]
  - Product administration error [Recovered/Resolved]

NARRATIVE: CASE EVENT DATE: 20210113
